FAERS Safety Report 5226612-3 (Version None)
Quarter: 2007Q1

REPORT INFORMATION
  Report Type: 
  Country: None (occurrence: None)
  Receive Date: 20070201
  Receipt Date: 20070123
  Transmission Date: 20070707
  Serious: Yes (Hospitalization)
  Sender: FDA-Public Use
  Company Number: FR-PFIZER INC-2007007123

PATIENT
  Age: 84 Year
  Sex: Male

DRUGS (11)
  1. AMLOR [Suspect]
     Indication: ESSENTIAL HYPERTENSION
     Route: 048
  2. ALDALIX [Suspect]
     Indication: ESSENTIAL HYPERTENSION
     Dosage: TEXT:1 DOSE FORM
     Route: 048
  3. LASIX [Suspect]
     Indication: ESSENTIAL HYPERTENSION
     Route: 048
  4. TEMESTA [Suspect]
     Indication: ANXIETY
     Route: 048
  5. XATRAL [Suspect]
     Indication: ARTERITIS
     Route: 048
  6. NISIS [Suspect]
     Indication: ESSENTIAL HYPERTENSION
     Dosage: TEXT:1 DOSE FORM
     Route: 048
  7. MINISINTROM [Concomitant]
  8. GLIMEPIRIDE [Concomitant]
  9. CORDARONE [Concomitant]
  10. CREON [Concomitant]
  11. LOPERAMIDE HYDROCHLORIDE [Concomitant]

REACTIONS (2)
  - HYPONATRAEMIA [None]
  - ORTHOSTATIC HYPOTENSION [None]
